FAERS Safety Report 8496610-5 (Version None)
Quarter: 2012Q3

REPORT INFORMATION
  Report Type: 
  Country: None (occurrence: None)
  Receive Date: 20120709
  Receipt Date: 20120705
  Transmission Date: 20120928
  Serious: Yes (Hospitalization, Other)
  Sender: FDA-Public Use
  Company Number: US-PFIZER INC-2012155782

PATIENT
  Sex: Female

DRUGS (2)
  1. PROTONIX [Suspect]
     Route: 064
  2. PAXIL [Suspect]
     Route: 064

REACTIONS (8)
  - PREMATURE BABY [None]
  - CARDIAC MURMUR [None]
  - ASTHMA [None]
  - DYSPNOEA [None]
  - GASTROOESOPHAGEAL REFLUX DISEASE [None]
  - ANXIETY [None]
  - VOMITING [None]
  - MATERNAL EXPOSURE TIMING UNSPECIFIED [None]
